FAERS Safety Report 6836467-9 (Version None)
Quarter: 2010Q3

REPORT INFORMATION
  Report Type: 
  Country: None (occurrence: None)
  Receive Date: 20100713
  Receipt Date: 20100706
  Transmission Date: 20110219
  Serious: Yes (Other)
  Sender: FDA-Public Use
  Company Number: US-BAYER-201027307NA

PATIENT
  Sex: Female

DRUGS (1)
  1. YASMIN [Suspect]
     Indication: VAGINAL HAEMORRHAGE
     Route: 048
     Dates: start: 20100601

REACTIONS (2)
  - VAGINAL HAEMORRHAGE [None]
  - WEIGHT DECREASED [None]
